FAERS Safety Report 8228308-2 (Version None)
Quarter: 2012Q1

REPORT INFORMATION
  Report Type: 
  Country: None (occurrence: None)
  Receive Date: 20120322
  Receipt Date: 20120313
  Transmission Date: 20120608
  Serious: Yes (Hospitalization)
  Sender: FDA-Public Use
  Company Number: CA-JNJFOC-20120306202

PATIENT
  Sex: Female
  Weight: 44.91 kg

DRUGS (4)
  1. VENTOLIN [Concomitant]
     Route: 065
  2. REMICADE [Suspect]
     Indication: CROHN'S DISEASE
     Route: 042
     Dates: start: 20020101
  3. SPIRIVA [Concomitant]
     Route: 065
  4. FLOVENT [Concomitant]
     Route: 065

REACTIONS (3)
  - PALPITATIONS [None]
  - DYSPNOEA [None]
  - ILEUS [None]
